FAERS Safety Report 6337680-X (Version None)
Quarter: 2009Q3

REPORT INFORMATION
  Report Type: 
  Country: None (occurrence: None)
  Receive Date: 20090902
  Receipt Date: 20090826
  Transmission Date: 20100115
  Serious: Yes (Other)
  Sender: FDA-Public Use
  Company Number: DE-BRISTOL-MYERS SQUIBB COMPANY-14756381

PATIENT
  Sex: Female

DRUGS (3)
  1. QUANTALAN [Suspect]
     Indication: DIARRHOEA
     Dates: start: 20070101
  2. QUANTALAN [Suspect]
     Indication: ILEECTOMY
     Dates: start: 20070101
  3. OPIUM TINCTURE [Concomitant]

REACTIONS (2)
  - AUTOIMMUNE THROMBOCYTOPENIA [None]
  - HAEMATOMA [None]
